FAERS Safety Report 19055837 (Version 2)
Quarter: 2021Q3

REPORT INFORMATION
  Report Type: Spontaneous
  Country: FR (occurrence: FR)
  Receive Date: 20210324
  Receipt Date: 20210712
  Transmission Date: 20211014
  Serious: Yes (Death, Other)
  Sender: FDA-Public Use
  Company Number: FR-PFIZER INC-2021272156

PATIENT
  Age: 4 Year
  Sex: Male
  Weight: 20 kg

DRUGS (18)
  1. PARACETAMOL MACOPHARMA [Concomitant]
     Active Substance: ACETAMINOPHEN
  2. BESPONSA [Suspect]
     Active Substance: INOTUZUMAB OZOGAMICIN
     Indication: B-CELL TYPE ACUTE LEUKAEMIA
     Dosage: 0.8 MG/M2, SINGLE
     Route: 041
     Dates: start: 20210209, end: 20210209
  3. AMLODIPINE [Concomitant]
     Active Substance: AMLODIPINE BESYLATE
  4. PLITICAN [Concomitant]
     Active Substance: ALIZAPRIDE HYDROCHLORIDE
  5. VITAMINE A DULCIS [Concomitant]
     Active Substance: RETINOL
  6. ONDANSETRON ACCORD [Concomitant]
     Active Substance: ONDANSETRON
  7. BACTRIM [Concomitant]
     Active Substance: SULFAMETHOXAZOLE\TRIMETHOPRIM
  8. NICARDIPINE ARROW [Concomitant]
     Active Substance: NICARDIPINE
  9. MORPHINE [Concomitant]
     Active Substance: MORPHINE
  10. ACUPAN [Concomitant]
     Active Substance: NEFOPAM HYDROCHLORIDE
  11. PHLOROGLUCINOL/TRIMETHYLPHLOROGLUCINOL ARROW [Concomitant]
     Active Substance: PHLOROGLUCINOL\1,3,5-TRIMETHOXYBENZENE
  12. FORLAX [Concomitant]
     Active Substance: POLYETHYLENE GLYCOL 4000
  13. VITAMIN K [Concomitant]
     Active Substance: PHYTONADIONE
  14. PANTOPRAZOLE SODIUM. [Concomitant]
     Active Substance: PANTOPRAZOLE SODIUM
  15. METHYLPREDNISOLONE MYLAN [METHYLPREDNISOLONE HEMISUCCINATE] [Concomitant]
     Active Substance: METHYLPREDNISOLONE HEMISUCCINATE
  16. CALCIDOSE VITAMINE D [Concomitant]
     Active Substance: CALCIUM\CHOLECALCIFEROL
  17. FUROSEMIDE RENAUDIN [Concomitant]
     Active Substance: FUROSEMIDE
  18. PIPERACILLIN/TAZOBACTAM PANPHARMA [Concomitant]
     Active Substance: PIPERACILLIN SODIUM\TAZOBACTAM SODIUM

REACTIONS (2)
  - Neoplasm progression [Fatal]
  - Tongue oedema [Recovering/Resolving]

NARRATIVE: CASE EVENT DATE: 20210210
